FAERS Safety Report 14814464 (Version 8)
Quarter: 2019Q1

REPORT INFORMATION
  Report Type: Spontaneous
  Country: US (occurrence: US)
  Receive Date: 20180426
  Receipt Date: 20190307
  Transmission Date: 20190417
  Serious: Yes (Hospitalization, Other)
  Sender: FDA-Public Use
  Company Number: US-ACORDA-ACO_146844_2018

PATIENT
  Age: 56 Year
  Sex: Male
  Weight: 135.6 kg

DRUGS (26)
  1. AVONEX [Suspect]
     Active Substance: INTERFERON BETA-1A
     Indication: MULTIPLE SCLEROSIS
     Dosage: 30 MCG, WEEKLY
     Route: 030
     Dates: start: 200904, end: 20110804
  2. SOLU-MEDROL [Suspect]
     Active Substance: METHYLPREDNISOLONE SODIUM SUCCINATE
     Indication: RELAPSING-REMITTING MULTIPLE SCLEROSIS
     Dosage: 1 G, PRN
     Route: 042
  3. TRILEPTAL [Suspect]
     Active Substance: OXCARBAZEPINE
     Indication: PRODUCT USED FOR UNKNOWN INDICATION
     Dosage: 1 DF PO BID FOR 1 WEEK, THEN INCREASE TO 2 DF PO BID
     Route: 065
  4. MIRALAX [Concomitant]
     Active Substance: POLYETHYLENE GLYCOL 3350
     Indication: PRODUCT USED FOR UNKNOWN INDICATION
     Dosage: UNK, QOD
     Route: 065
  5. AMPYRA [Suspect]
     Active Substance: DALFAMPRIDINE
     Indication: ATAXIA
     Dosage: 10 MG, BID
     Route: 048
     Dates: start: 20110331
  6. COPAXONE [Suspect]
     Active Substance: GLATIRAMER ACETATE
     Indication: PRODUCT USED FOR UNKNOWN INDICATION
     Dosage: 20 MG/ML, DAILY
     Route: 058
     Dates: start: 2010
  7. AVONEX [Suspect]
     Active Substance: INTERFERON BETA-1A
     Indication: RELAPSING-REMITTING MULTIPLE SCLEROSIS
  8. LISINOPRIL. [Concomitant]
     Active Substance: LISINOPRIL
     Indication: PRODUCT USED FOR UNKNOWN INDICATION
     Dosage: 10 MG, QD
     Route: 048
  9. LYRICA [Concomitant]
     Active Substance: PREGABALIN
     Indication: PRODUCT USED FOR UNKNOWN INDICATION
     Dosage: 150 MCG, TID
     Route: 065
  10. VOLTAREN [Concomitant]
     Active Substance: DICLOFENAC SODIUM
     Indication: PRODUCT USED FOR UNKNOWN INDICATION
     Dosage: 1 DF, Q 8 HRS
     Route: 061
  11. NUVIGIL [Concomitant]
     Active Substance: ARMODAFINIL
     Indication: PRODUCT USED FOR UNKNOWN INDICATION
     Dosage: UNK
     Route: 065
  12. LUNESTA [Concomitant]
     Active Substance: ESZOPICLONE
     Indication: PRODUCT USED FOR UNKNOWN INDICATION
     Dosage: UNK
     Route: 065
  13. TRILEPTAL [Suspect]
     Active Substance: OXCARBAZEPINE
     Indication: RELAPSING-REMITTING MULTIPLE SCLEROSIS
  14. SYNTHROID [Concomitant]
     Active Substance: LEVOTHYROXINE SODIUM
     Indication: PRODUCT USED FOR UNKNOWN INDICATION
     Dosage: 25 MCG, QD
     Route: 048
  15. AMPYRA [Suspect]
     Active Substance: DALFAMPRIDINE
     Indication: RELAPSING-REMITTING MULTIPLE SCLEROSIS
     Dosage: 10 MG, BID
     Route: 048
  16. COPAXONE [Suspect]
     Active Substance: GLATIRAMER ACETATE
     Dosage: UNK, 3X/WK
     Route: 058
  17. SOLU-MEDROL [Suspect]
     Active Substance: METHYLPREDNISOLONE SODIUM SUCCINATE
     Indication: MULTIPLE SCLEROSIS RELAPSE
     Dosage: 1 GRAM, QD; INFUSE OVER 2 HOURS
     Route: 042
  18. LISINOPRIL. [Concomitant]
     Active Substance: LISINOPRIL
     Dosage: 20 MG, QD
     Route: 048
  19. PERCOCET [Concomitant]
     Active Substance: ACETAMINOPHEN\OXYCODONE HYDROCHLORIDE
     Indication: PRODUCT USED FOR UNKNOWN INDICATION
     Dosage: 10 / 325 MG; 1/2 TO 1 QD PRN AS DIRECTED
     Route: 048
  20. CELEBREX [Concomitant]
     Active Substance: CELECOXIB
     Indication: PRODUCT USED FOR UNKNOWN INDICATION
     Dosage: 200 MG, QD
     Route: 048
  21. LIDODERM [Concomitant]
     Active Substance: LIDOCAINE
     Indication: PRODUCT USED FOR UNKNOWN INDICATION
     Dosage: UNK
     Route: 065
  22. TECFIDERA [Suspect]
     Active Substance: DIMETHYL FUMARATE
     Indication: MULTIPLE SCLEROSIS
     Dosage: 240 MG, UNK
     Route: 048
     Dates: start: 20171212
  23. NASONEX [Concomitant]
     Active Substance: MOMETASONE FUROATE
     Indication: PRODUCT USED FOR UNKNOWN INDICATION
     Dosage: 2 SPRAYS EACH NOSTRIL, QD PRN
     Route: 045
  24. SYNTHROID [Concomitant]
     Active Substance: LEVOTHYROXINE SODIUM
     Dosage: 100 MCG, UNK
     Route: 048
  25. LYRICA [Concomitant]
     Active Substance: PREGABALIN
     Dosage: 225 MG, QD
     Route: 048
  26. IBUPROFEN. [Concomitant]
     Active Substance: IBUPROFEN
     Indication: PREMEDICATION
     Dosage: 800 MG, QD
     Route: 048
     Dates: start: 20100716

REACTIONS (36)
  - Tinnitus [Recovered/Resolved]
  - Ocular hyperaemia [Recovered/Resolved]
  - Fatigue [Unknown]
  - Rash [Recovered/Resolved]
  - Product use in unapproved indication [Unknown]
  - Therapeutic response unexpected [Unknown]
  - Abdominal discomfort [Recovered/Resolved]
  - Therapy cessation [Recovered/Resolved]
  - Injection site atrophy [Unknown]
  - Drug intolerance [Recovered/Resolved]
  - Muscle spasms [Unknown]
  - Deep vein thrombosis [Recovered/Resolved]
  - Injection site urticaria [Recovered/Resolved]
  - Chest pain [Recovered/Resolved]
  - Drug hypersensitivity [Recovered/Resolved]
  - Vision blurred [Unknown]
  - Stomatitis [Unknown]
  - Pyrexia [Unknown]
  - Prostate cancer [Recovered/Resolved]
  - Multiple sclerosis relapse [Recovered/Resolved]
  - Injection site pain [Unknown]
  - Weight decreased [Recovered/Resolved]
  - Streptococcal infection [Recovered/Resolved]
  - Dry mouth [Recovered/Resolved]
  - Dysphonia [Recovered/Resolved]
  - Increased tendency to bruise [Not Recovered/Not Resolved]
  - Tenderness [Recovering/Resolving]
  - Multiple sclerosis [Not Recovered/Not Resolved]
  - Infection [Recovered/Resolved]
  - Urticaria [Unknown]
  - Photosensitivity reaction [Unknown]
  - Neck pain [Recovered/Resolved]
  - Bacteraemia [Recovered/Resolved]
  - Insomnia [Unknown]
  - Dry eye [Unknown]
  - Hypoaesthesia [Unknown]

NARRATIVE: CASE EVENT DATE: 2011
